FAERS Safety Report 17307944 (Version 2)
Quarter: 2020Q2

REPORT INFORMATION
  Report Type: Spontaneous
  Country: US (occurrence: US)
  Receive Date: 20200123
  Receipt Date: 20200615
  Transmission Date: 20200713
  Serious: Yes (Death, Other)
  Sender: FDA-Public Use
  Company Number: US-SA-2020SA014853

PATIENT

DRUGS (3)
  1. GOLD BOND ORIGINAL STRENGTH POWDER [Suspect]
     Active Substance: MENTHOL\ZINC OXIDE
     Dosage: UNK
     Route: 050
  2. GOLD BOND ORIGINAL STRENGTH POWDER [Suspect]
     Active Substance: MENTHOL\ZINC OXIDE
     Dosage: UNK
     Route: 050
  3. GOLD BOND ORIGINAL STRENGTH POWDER [Suspect]
     Active Substance: MENTHOL\ZINC OXIDE
     Dosage: UNK
     Route: 055

REACTIONS (6)
  - Lung neoplasm malignant [Fatal]
  - Pain [Unknown]
  - Exposure to chemical pollution [Unknown]
  - Anxiety [Unknown]
  - Impaired work ability [Unknown]
  - Occupational exposure to product [Unknown]

NARRATIVE: CASE EVENT DATE: 201901
